FAERS Safety Report 5734407-7 (Version None)
Quarter: 2008Q2

REPORT INFORMATION
  Report Type: 
  Country: None (occurrence: None)
  Receive Date: 20080508
  Receipt Date: 20080508
  Transmission Date: 20081010
  Serious: Yes (Hospitalization, Disabling)
  Sender: FDA-Public Use
  Company Number: None

PATIENT
  Age: 55 Year
  Sex: Female
  Weight: 68.0396 kg

DRUGS (1)
  1. LEVAQUIN [Suspect]
     Indication: INFECTION PROPHYLAXIS
     Dosage: ONE PILL PER DAY PO
     Route: 048
     Dates: start: 20080221, end: 20080301

REACTIONS (10)
  - ACTIVITIES OF DAILY LIVING IMPAIRED [None]
  - ARTHRITIS [None]
  - CRYING [None]
  - FEAR [None]
  - GAIT DISTURBANCE [None]
  - IMPAIRED DRIVING ABILITY [None]
  - INSOMNIA [None]
  - JOINT SWELLING [None]
  - TENDON PAIN [None]
  - THERAPEUTIC AGENT TOXICITY [None]
